FAERS Safety Report 4989190-X (Version None)
Quarter: 2006Q2

REPORT INFORMATION
  Report Type: 
  Country: None (occurrence: None)
  Receive Date: 20060425
  Receipt Date: 20060323
  Transmission Date: 20061013
  Serious: Yes (Hospitalization, Other)
  Sender: FDA-Public Use
  Company Number: 2006-US-00502

PATIENT
  Age: 64 Year
  Sex: Female
  Weight: 56.6996 kg

DRUGS (5)
  1. CLOZAPINE [Suspect]
     Indication: SCHIZOPHRENIA
     Dosage: 200 MG, QD, ORAL
     Route: 048
     Dates: start: 20051213, end: 20060108
  2. QUETIQPINE [Concomitant]
  3. ARIPIPRAZOLE [Concomitant]
  4. FLUPHENAZINE HCL [Concomitant]
  5. BENZTROPINE MESYLATE [Concomitant]

REACTIONS (8)
  - ATRIAL FIBRILLATION [None]
  - CARDIAC FAILURE CONGESTIVE [None]
  - DELUSION [None]
  - FEAR [None]
  - HEART RATE IRREGULAR [None]
  - PARANOIA [None]
  - PULMONARY OEDEMA [None]
  - TACHYCARDIA [None]
